FAERS Safety Report 6481438-8 (Version None)
Quarter: 2009Q4

REPORT INFORMATION
  Report Type: 
  Country: None (occurrence: None)
  Receive Date: 20091208
  Receipt Date: 20090415
  Transmission Date: 20100525
  Serious: No
  Sender: FDA-Public Use
  Company Number: US-AMGEN-KDL338644

PATIENT
  Sex: Female
  Weight: 67.2 kg

DRUGS (13)
  1. ENBREL [Suspect]
     Indication: RHEUMATOID ARTHRITIS
     Route: 058
     Dates: start: 20090213, end: 20090414
  2. ATIVAN [Concomitant]
  3. AMBIEN [Concomitant]
  4. BONIVA [Concomitant]
     Route: 042
  5. TOPROL-XL [Concomitant]
  6. PROTONIX [Concomitant]
  7. MENTAX [Concomitant]
  8. TRICOR [Concomitant]
  9. BENICAR [Concomitant]
  10. ORAMORPH SR [Concomitant]
  11. CREON [Concomitant]
  12. HYDROMORPHONE HCL [Concomitant]
  13. LEXAPRO [Concomitant]

REACTIONS (4)
  - DRUG INEFFECTIVE [None]
  - INJECTION SITE ERYTHEMA [None]
  - INJECTION SITE PRURITUS [None]
  - INJECTION SITE SWELLING [None]
